FAERS Safety Report 22957403 (Version 2)
Quarter: 2023Q4

REPORT INFORMATION
  Report Type: Spontaneous
  Country: US (occurrence: US)
  Receive Date: 20230919
  Receipt Date: 20231023
  Transmission Date: 20240110
  Serious: No
  Sender: FDA-Public Use
  Company Number: US-PFIZER INC-PV202300019021

PATIENT
  Age: 56 Year
  Sex: Female
  Weight: 80.726 kg

DRUGS (5)
  1. TRAZIMERA [Suspect]
     Active Substance: TRASTUZUMAB-QYYP
     Indication: HER2 positive breast cancer
     Dosage: UNK
     Dates: start: 20220328, end: 20220713
  2. TRAZIMERA [Suspect]
     Active Substance: TRASTUZUMAB-QYYP
     Indication: Laryngeal cancer
     Dosage: 21-DAY CYCLE FOR 6 CYCLES (75 MG/M OVER 60 MINS ON DAY 1
     Route: 042
     Dates: start: 20220803
  3. TRAZIMERA [Suspect]
     Active Substance: TRASTUZUMAB-QYYP
     Indication: Pulmonary mass
  4. TRAZIMERA [Suspect]
     Active Substance: TRASTUZUMAB-QYYP
     Indication: Intraductal proliferative breast lesion
  5. TAMOXIFEN [Concomitant]
     Active Substance: TAMOXIFEN
     Dosage: UNK
     Dates: start: 20220912

REACTIONS (6)
  - Weight increased [Unknown]
  - COVID-19 [Recovered/Resolved]
  - Cough [Unknown]
  - Off label use [Unknown]
  - Off label use [Unknown]
  - Intentional product use issue [Unknown]

NARRATIVE: CASE EVENT DATE: 20220601
